FAERS Safety Report 4521304-8 (Version None)
Quarter: 2004Q4

REPORT INFORMATION
  Report Type: 
  Country: None (occurrence: None)
  Receive Date: 20041208
  Receipt Date: 20041201
  Transmission Date: 20050328
  Serious: Yes (Other)
  Sender: FDA-Public Use
  Company Number: PHBS2004US16088

PATIENT
  Age: 49 Year
  Sex: Female

DRUGS (1)
  1. LIORESAL [Suspect]
     Indication: MUSCLE SPASTICITY
     Route: 037

REACTIONS (4)
  - ANXIETY [None]
  - HYPERHIDROSIS [None]
  - IRRITABILITY [None]
  - MUSCLE SPASTICITY [None]
